FAERS Safety Report 7368022-9 (Version None)
Quarter: 2011Q1

REPORT INFORMATION
  Report Type: 
  Country: None (occurrence: None)
  Receive Date: 20110323
  Receipt Date: 20110318
  Transmission Date: 20110831
  Serious: Yes (Death)
  Sender: FDA-Public Use
  Company Number: US-BAYER-2011-024530

PATIENT
  Sex: Female

DRUGS (3)
  1. AVELOX [Suspect]
     Indication: BRONCHITIS
     Dosage: UNK
     Dates: start: 20110217
  2. LOESTRIN 1.5/30 [Concomitant]
     Indication: CONTRACEPTION
  3. ANTIBIOTICS [Concomitant]
     Indication: INFLUENZA

REACTIONS (1)
  - DEATH [None]
